FAERS Safety Report 16042412 (Version 1)
Quarter: 2019Q1

REPORT INFORMATION
  Report Type: Spontaneous
  Country: US (occurrence: US)
  Receive Date: 20190306
  Receipt Date: 20190306
  Transmission Date: 20190418
  Serious: No
  Sender: FDA-Public Use
  Company Number: US-AKORN PHARMACEUTICALS-2018AKN00951

PATIENT
  Age: 39 Year
  Sex: Female
  Weight: 70.3 kg

DRUGS (4)
  1. SERTRALINE [Concomitant]
     Active Substance: SERTRALINE HYDROCHLORIDE
     Dosage: 0.5 TABLETS, 1X/DAY
  2. MYORISAN [Suspect]
     Active Substance: ISOTRETINOIN
     Indication: ACNE
     Dosage: 40 MG, 1X/DAY
     Route: 048
     Dates: start: 20180206, end: 2018
  3. MYORISAN [Suspect]
     Active Substance: ISOTRETINOIN
     Indication: ACNE
     Dosage: 30 MG, 1X/DAY
     Route: 048
     Dates: start: 20180109, end: 20180417
  4. ESZOPICLONE. [Concomitant]
     Active Substance: ESZOPICLONE
     Dosage: 1 MG, 1X/DAY ^AT BEDTIME^

REACTIONS (3)
  - Arthralgia [Recovering/Resolving]
  - Off label use [Recovered/Resolved]
  - Myalgia [Recovering/Resolving]

NARRATIVE: CASE EVENT DATE: 2018
